FAERS Safety Report 12983765 (Version 1)
Quarter: 2016Q4

REPORT INFORMATION
  Report Type: Spontaneous
  Country: KR (occurrence: KR)
  Receive Date: 20161129
  Receipt Date: 20161129
  Transmission Date: 20170207
  Serious: Yes (Other)
  Sender: FDA-Public Use
  Company Number: KR-B.I. PHARMACEUTICALS,INC./RIDGEFIELD-2014-BI-55720YA

PATIENT
  Sex: Male

DRUGS (3)
  1. TAMSULOSINA [Suspect]
     Active Substance: TAMSULOSIN HYDROCHLORIDE
     Indication: LOWER URINARY TRACT SYMPTOMS
     Route: 048
  2. SOLIFENACIN [Suspect]
     Active Substance: SOLIFENACIN
     Indication: LOWER URINARY TRACT SYMPTOMS
     Route: 048
  3. DESMOPRESSIN [Suspect]
     Active Substance: DESMOPRESSIN
     Indication: LOWER URINARY TRACT SYMPTOMS
     Route: 065

REACTIONS (1)
  - Hypertension [Unknown]
